FAERS Safety Report 6876785-1 (Version None)
Quarter: 2010Q2

REPORT INFORMATION
  Report Type: 
  Country: None (occurrence: None)
  Receive Date: 20100616
  Receipt Date: 20100428
  Transmission Date: 20101027
  Serious: No
  Sender: FDA-Public Use
  Company Number: DSA_43072_2010

PATIENT
  Sex: Female

DRUGS (3)
  1. XENAZINE [Suspect]
     Indication: DYSTONIA
     Dosage: 12.5 MG TID ORAL, DF ORAL
     Route: 048
  2. KEPPRA [Concomitant]
  3. GLYCOPYRROLATE [Concomitant]

REACTIONS (1)
  - MIGRAINE [None]
